FAERS Safety Report 13472987 (Version 3)
Quarter: 2017Q2

REPORT INFORMATION
  Report Type: Other
  Country: US (occurrence: US)
  Receive Date: 20170424
  Receipt Date: 20170518
  Transmission Date: 20170830
  Serious: Yes (Hospitalization)
  Sender: FDA-Public Use
  Company Number: US-ACORDA-ACO_136605_2017

PATIENT
  Age: 62 Year
  Sex: Female
  Weight: 97.96 kg

DRUGS (2)
  1. AMPYRA [Suspect]
     Active Substance: DALFAMPRIDINE
     Indication: MULTIPLE SCLEROSIS
  2. AMPYRA [Suspect]
     Active Substance: DALFAMPRIDINE
     Indication: GAIT DISTURBANCE
     Dosage: 10 MG, BID
     Route: 048
     Dates: end: 2017

REACTIONS (10)
  - Failure to thrive [Recovered/Resolved]
  - Cholelithiasis [Unknown]
  - Fall [Recovered/Resolved]
  - Decubitus ulcer [Not Recovered/Not Resolved]
  - Pyrexia [Recovered/Resolved]
  - Bladder catheterisation [Not Recovered/Not Resolved]
  - Multiple sclerosis [Unknown]
  - Ankle fracture [Recovered/Resolved]
  - Weight bearing difficulty [Not Recovered/Not Resolved]
  - Infection [Recovered/Resolved]

NARRATIVE: CASE EVENT DATE: 20160718
